FAERS Safety Report 10677832 (Version 2)
Quarter: 2015Q1

REPORT INFORMATION
  Report Type: Spontaneous
  Country: US (occurrence: None)
  Receive Date: 20141223
  Receipt Date: 20150324
  Transmission Date: 20150720
  Serious: Yes (Hospitalization)
  Sender: FDA-Public Use
  Company Number: 201412099

PATIENT
  Age: 68 Year
  Sex: Male

DRUGS (15)
  1. FLUOXETINE [Concomitant]
     Active Substance: FLUOXETINE\FLUOXETINE HYDROCHLORIDE
  2. HYDROCODONE [Concomitant]
     Active Substance: HYDROCODONE
  3. LEVITRA (VARDENAFIL HYDROCHLORIDE) [Concomitant]
  4. AMBIEN [Concomitant]
     Active Substance: ZOLPIDEM TARTRATE
  5. CARISOPRODOL. [Concomitant]
     Active Substance: CARISOPRODOL
  6. HYDROCORTISONE. [Concomitant]
     Active Substance: HYDROCORTISONE
  7. LORAZEPAM. [Concomitant]
     Active Substance: LORAZEPAM
  8. TRIAMTERENE/HCTZ (HYDROCHLOROTHIAZIDE, TRIAMTERENE) [Concomitant]
  9. RESCON MX (PHENYLEPHRINE HYDROCHLORIDE) [Concomitant]
  10. LEVITRA (VARDENAFIL HYDROCHLORIDE) [Concomitant]
  11. TESTIM [Suspect]
     Active Substance: TESTOSTERONE
     Indication: BLOOD TESTOSTERONE DECREASED
     Route: 062
     Dates: start: 2008, end: 20090131
  12. VIAGRA [Concomitant]
     Active Substance: SILDENAFIL CITRATE
  13. LEVOTHYROXINE [Concomitant]
     Active Substance: LEVOTHYROXINE
  14. METHYLPREDNISOLONE. [Concomitant]
     Active Substance: METHYLPREDNISOLONE
  15. AMBIEN [Concomitant]
     Active Substance: ZOLPIDEM TARTRATE

REACTIONS (6)
  - Myocardial infarction [None]
  - Hyperhidrosis [None]
  - Anxiety [None]
  - Dyspnoea [None]
  - Acute coronary syndrome [None]
  - Multiple injuries [None]

NARRATIVE: CASE EVENT DATE: 20090131
